FAERS Safety Report 19688472 (Version 6)
Quarter: 2022Q1

REPORT INFORMATION
  Report Type: Report from Study
  Country: AU (occurrence: AU)
  Receive Date: 20210811
  Receipt Date: 20220307
  Transmission Date: 20220424
  Serious: Yes (Hospitalization)
  Sender: FDA-Public Use
  Company Number: AU-BRISTOL-MYERS SQUIBB COMPANY-BMS-2021-076224

PATIENT
  Age: 16 Year
  Sex: Male
  Weight: 50 kg

DRUGS (45)
  1. INVESTIGATIONAL PRODUCT [Suspect]
     Active Substance: INVESTIGATIONAL PRODUCT
     Indication: Gastrointestinal stromal tumour
     Dosage: 0.3 MILLIGRAM
     Route: 042
     Dates: start: 20210802
  2. NIVOLUMAB [Suspect]
     Active Substance: NIVOLUMAB
     Indication: Gastrointestinal stromal tumour
     Dosage: 360 MILLIGRAM
     Route: 042
     Dates: start: 20210802
  3. GABAPENTIN [Concomitant]
     Active Substance: GABAPENTIN
     Indication: Product used for unknown indication
     Dosage: 200 MILLIGRAM, TID
     Route: 048
     Dates: start: 20200714
  4. TRAMADOL [Concomitant]
     Active Substance: TRAMADOL
     Indication: Product used for unknown indication
     Dosage: 50 MILLIGRAM, BID
     Route: 048
     Dates: start: 20210729, end: 20210801
  5. TRAMADOL [Concomitant]
     Active Substance: TRAMADOL
     Dosage: 50 MILLIGRAM, Q6H
     Route: 048
     Dates: start: 20210729, end: 20210804
  6. DDAVP [Concomitant]
     Active Substance: DESMOPRESSIN ACETATE
     Indication: Prophylaxis
     Dosage: 15 MICROGRAM
     Route: 042
     Dates: start: 20210728, end: 20210728
  7. ACETAMINOPHEN [Concomitant]
     Active Substance: ACETAMINOPHEN
     Indication: Pain
     Dosage: 750 MILLIGRAM
     Route: 042
     Dates: start: 20210728, end: 20210728
  8. ACETAMINOPHEN [Concomitant]
     Active Substance: ACETAMINOPHEN
     Indication: Headache
     Dosage: 735 MILLIGRAM, QID
     Route: 042
     Dates: start: 20210728, end: 20210729
  9. ACETAMINOPHEN [Concomitant]
     Active Substance: ACETAMINOPHEN
     Indication: Pain in extremity
     Dosage: 750 MILLIGRAM
     Route: 048
     Dates: start: 20210729, end: 20210801
  10. ACETAMINOPHEN [Concomitant]
     Active Substance: ACETAMINOPHEN
     Dosage: 750 MILLIGRAM
     Route: 048
     Dates: start: 20210802, end: 20210912
  11. DEXAMETHASONE [Concomitant]
     Active Substance: DEXAMETHASONE
     Indication: Product used for unknown indication
     Dosage: 8 MILLIGRAM
     Route: 042
     Dates: start: 20210728, end: 20210728
  12. OXYCODONE [Concomitant]
     Active Substance: OXYCODONE
     Indication: Product used for unknown indication
     Dosage: 5 MILLIGRAM, Q6H
     Route: 048
     Dates: start: 20210801, end: 20210804
  13. OXYCODONE [Concomitant]
     Active Substance: OXYCODONE
     Dosage: 5 MILLIGRAM
     Route: 048
     Dates: start: 20210807
  14. DOCUSATE SODIUM [Concomitant]
     Active Substance: DOCUSATE SODIUM
     Indication: Product used for unknown indication
     Dosage: 100 MILLIGRAM, BID
     Route: 048
     Dates: start: 20210801, end: 20210807
  15. PARECOXIB [Concomitant]
     Active Substance: PARECOXIB
     Indication: Product used for unknown indication
     Dosage: 40 MILLIGRAM
     Route: 042
     Dates: start: 20210728, end: 20210728
  16. KETAMINE [Concomitant]
     Active Substance: KETAMINE
     Indication: Product used for unknown indication
     Dosage: 40 MILLIGRAM
     Route: 042
     Dates: start: 20210728, end: 20210728
  17. KETAMINE [Concomitant]
     Active Substance: KETAMINE
     Dosage: 20 MILLIGRAM
     Route: 042
     Dates: start: 20210728, end: 20210728
  18. ROCURONIUM [Concomitant]
     Active Substance: ROCURONIUM BROMIDE
     Indication: Product used for unknown indication
     Dosage: 50 MILLIGRAM
     Route: 042
     Dates: start: 20210728, end: 20210728
  19. HYDROMORPHONE [Concomitant]
     Active Substance: HYDROMORPHONE
     Indication: Product used for unknown indication
     Dosage: 0.4 MICROGRAM
     Route: 042
     Dates: start: 20210728, end: 20210728
  20. HYDROMORPHONE [Concomitant]
     Active Substance: HYDROMORPHONE
     Dosage: 0.2 MICROGRAM
     Route: 042
     Dates: start: 20210728, end: 20210728
  21. PROPOFOL [Concomitant]
     Active Substance: PROPOFOL
     Indication: Product used for unknown indication
     Dosage: 190 MILLIGRAM
     Route: 042
     Dates: start: 20210728, end: 20210728
  22. CEFAZOLIN [Concomitant]
     Active Substance: CEFAZOLIN
     Indication: Product used for unknown indication
     Dosage: 1.5 GRAM
     Route: 042
     Dates: start: 20210728, end: 20210728
  23. TRANEXAMIC ACID [Concomitant]
     Active Substance: TRANEXAMIC ACID
     Indication: Product used for unknown indication
     Dosage: 500 MILLIGRAM
     Route: 042
     Dates: start: 20210728, end: 20210728
  24. REMIFENTANIL [Concomitant]
     Active Substance: REMIFENTANIL
     Indication: Product used for unknown indication
     Dosage: 0.35 MICROGRAM
     Route: 042
     Dates: start: 20210728, end: 20210728
  25. METARAMINOL [Concomitant]
     Active Substance: METARAMINOL
     Indication: Product used for unknown indication
     Dosage: 0.5 MILLIGRAM
     Route: 042
     Dates: start: 20210728, end: 20210728
  26. COMPOUND SODIUM LACTATE [CALCIUM CHLORIDE;POTASSIUM CHLORIDE;SODIUM CH [Concomitant]
     Indication: Product used for unknown indication
     Dosage: 650 MILLILITER
     Route: 042
     Dates: start: 20210728, end: 20210728
  27. ONDANSETRON [Concomitant]
     Active Substance: ONDANSETRON
     Indication: Prophylaxis
     Dosage: 8 MILLIGRAM
     Route: 042
     Dates: start: 20210728, end: 20210728
  28. ONDANSETRON [Concomitant]
     Active Substance: ONDANSETRON
     Dosage: 8 MILLIGRAM
     Route: 042
     Dates: start: 20210803, end: 20210803
  29. ONDANSETRON [Concomitant]
     Active Substance: ONDANSETRON
     Dosage: 8 MILLIGRAM
     Route: 042
     Dates: start: 20210805, end: 20210805
  30. ONDANSETRON [Concomitant]
     Active Substance: ONDANSETRON
     Dosage: 8 MILLIGRAM, AS NEEDED
     Route: 048
     Dates: start: 20210730, end: 20210730
  31. DROPERIDOL [Concomitant]
     Active Substance: DROPERIDOL
     Indication: Product used for unknown indication
     Dosage: 500 MICROGRAM
     Route: 042
     Dates: start: 20210728, end: 20210728
  32. METOCLOPRAMIDE [Concomitant]
     Active Substance: METOCLOPRAMIDE
     Indication: Vomiting
     Dosage: 10 MILLIGRAM
     Route: 042
     Dates: start: 20210728, end: 20210728
  33. METOCLOPRAMIDE [Concomitant]
     Active Substance: METOCLOPRAMIDE
     Dosage: 10 MILLIGRAM
     Route: 042
     Dates: start: 20210803, end: 20210803
  34. FENTANYL [Concomitant]
     Active Substance: FENTANYL
     Indication: Product used for unknown indication
     Dosage: 20 MILLIGRAM/KILOGRAM, CONTINUOUS
     Route: 042
     Dates: start: 20210728, end: 20210731
  35. FENTANYL [Concomitant]
     Active Substance: FENTANYL
     Dosage: 1 DOSAGE FORM= 5 UNITS NOS, CONTINUOUS
     Route: 042
     Dates: start: 20210728, end: 20210731
  36. DEXTROSE\SODIUM CHLORIDE [Concomitant]
     Active Substance: DEXTROSE\SODIUM CHLORIDE
     Indication: Product used for unknown indication
     Dosage: 75 MILLILITER
     Route: 042
     Dates: start: 20210728, end: 20210728
  37. DEXTROSE;POTASSIUM CHLORIDE;SODIUM CHLORIDE [Concomitant]
     Indication: Product used for unknown indication
     Dosage: 75 MILLILITER
     Route: 042
     Dates: start: 20210728, end: 20210728
  38. DEXTROSE\SODIUM CHLORIDE [Concomitant]
     Active Substance: DEXTROSE\SODIUM CHLORIDE
     Indication: Product used for unknown indication
     Dosage: 85 MILLILITER
     Route: 042
     Dates: start: 20210728, end: 20210728
  39. DEXTROSE\SODIUM CHLORIDE [Concomitant]
     Active Substance: DEXTROSE\SODIUM CHLORIDE
     Dosage: 60 MILLILITER
     Route: 042
     Dates: start: 20210729, end: 20210801
  40. DEXTROSE\SODIUM CHLORIDE [Concomitant]
     Active Substance: DEXTROSE\SODIUM CHLORIDE
     Dosage: 90 MILLILITER
     Route: 042
     Dates: start: 20210802, end: 20210806
  41. CELECOXIB [Concomitant]
     Active Substance: CELECOXIB
     Indication: Product used for unknown indication
     Dosage: 100 MILLIGRAM
     Route: 048
     Dates: start: 20210720, end: 20210727
  42. MUPIROCIN [Concomitant]
     Active Substance: MUPIROCIN
     Indication: Prophylaxis
     Dosage: 1 DOSAGE FORM, BID
     Route: 045
     Dates: start: 20210724, end: 20210728
  43. CHLORHEXIDINE [Concomitant]
     Active Substance: CHLORHEXIDINE
     Indication: Prophylaxis
     Dosage: 1 DOSAGE FORM, QD
     Route: 061
     Dates: start: 20210724, end: 20210728
  44. HEPARIN SODIUM [Concomitant]
     Active Substance: HEPARIN SODIUM
     Indication: Product used for unknown indication
     Dosage: 1 DOSAGE FORM = 250 UNIT NOS
     Route: 042
     Dates: start: 20210728, end: 20210728
  45. SODIUM CHLORIDE [Concomitant]
     Active Substance: SODIUM CHLORIDE
     Indication: Product used for unknown indication
     Dosage: 250 MILLILITER
     Route: 042
     Dates: start: 20210728, end: 20210728

REACTIONS (1)
  - Influenza like illness [Recovered/Resolved]

NARRATIVE: CASE EVENT DATE: 20210803
